FAERS Safety Report 9031889 (Version 1)
Quarter: 2013Q1

REPORT INFORMATION
  Report Type: Spontaneous
  Country: US (occurrence: US)
  Receive Date: 20130125
  Receipt Date: 20130125
  Transmission Date: 20140127
  Serious: No
  Sender: FDA-Public Use
  Company Number: US-TARO-2012P1004122

PATIENT
  Age: 81 Year
  Sex: Male
  Weight: 97.52 kg

DRUGS (3)
  1. DESOXIMETASONE [Suspect]
     Indication: ECZEMA
     Route: 061
     Dates: start: 20111223, end: 201201
  2. NYSTATIN + TRIAMCINOLONE ACETONIDE CREAM USP [Suspect]
  3. ALBUTEROL [Concomitant]

REACTIONS (4)
  - Blister [Recovering/Resolving]
  - Pruritus [Unknown]
  - Haemorrhage [Unknown]
  - Rash macular [Not Recovered/Not Resolved]
